FAERS Safety Report 5283582-X (Version None)
Quarter: 2007Q2

REPORT INFORMATION
  Report Type: 
  Country: None (occurrence: None)
  Receive Date: 20070402
  Receipt Date: 20070319
  Transmission Date: 20071010
  Serious: Yes (Death, Hospitalization)
  Sender: FDA-Public Use
  Company Number: JP-ROCHE-488348

PATIENT
  Age: 70 Year
  Sex: Male

DRUGS (10)
  1. TICLOPIDINE HCL [Suspect]
     Indication: ANGINA PECTORIS
     Dosage: SECOND INDICATION: MYOCARDIAL INFARCTION
     Route: 065
     Dates: end: 20070224
  2. ADALAT [Suspect]
     Indication: HYPERTENSION
     Route: 065
     Dates: end: 20070224
  3. ADALAT [Suspect]
     Route: 065
     Dates: start: 20070227, end: 20070228
  4. ROCORNAL [Suspect]
     Indication: ANGINA PECTORIS
     Route: 065
     Dates: end: 20070224
  5. ROCORNAL [Suspect]
     Route: 065
     Dates: start: 20070227, end: 20070228
  6. BLOPRESS [Concomitant]
     Indication: HYPERTENSION
     Route: 048
     Dates: start: 20070227, end: 20070228
  7. SIGMART [Concomitant]
     Indication: ANGINA PECTORIS
     Route: 048
     Dates: end: 20070224
  8. FRANDOL [Concomitant]
     Indication: ANGINA PECTORIS
     Route: 048
     Dates: end: 20070224
  9. OLMETEC [Concomitant]
     Route: 065
     Dates: end: 20070224
  10. AMARYL [Concomitant]
     Route: 065
     Dates: end: 20070224

REACTIONS (5)
  - CARDIO-RESPIRATORY ARREST [None]
  - DEPRESSED LEVEL OF CONSCIOUSNESS [None]
  - EPISTAXIS [None]
  - GASTRIC ULCER HAEMORRHAGE [None]
  - SHOCK HAEMORRHAGIC [None]
